FAERS Safety Report 5869300-2 (Version None)
Quarter: 2008Q3

REPORT INFORMATION
  Report Type: 
  Country: None (occurrence: None)
  Receive Date: 20080828
  Receipt Date: 20080808
  Transmission Date: 20090109
  Serious: Yes (Other)
  Sender: FDA-Public Use
  Company Number: WAES 0808KOR00008

PATIENT
  Age: 56 Year
  Sex: Female

DRUGS (6)
  1. FOSAMAX PLUS D [Suspect]
     Indication: OSTEOPOROSIS
     Dosage: 70MG/5600 IU/WKY PO
     Route: 048
     Dates: start: 20080807, end: 20080808
  2. AMLODIPINE BESYLATE [Concomitant]
  3. ASPIRIN [Concomitant]
  4. CALCIUM (UNSPECIFIED) [Concomitant]
  5. LOSARTAN POTASSIUM-HCTZ [Concomitant]
  6. ROSUVASTATIN CALCIUM [Concomitant]

REACTIONS (5)
  - CHEST PAIN [None]
  - CHILLS [None]
  - MUSCULOSKELETAL PAIN [None]
  - PAIN [None]
  - PYREXIA [None]
